FAERS Safety Report 6110495-3 (Version None)
Quarter: 2009Q1

REPORT INFORMATION
  Report Type: 
  Country: None (occurrence: None)
  Receive Date: 20090310
  Receipt Date: 20090226
  Transmission Date: 20090719
  Serious: Yes (Death, Other)
  Sender: FDA-Public Use
  Company Number: AU-ELI_LILLY_AND_COMPANY-AU200902007588

PATIENT
  Age: 77 Year
  Sex: Female

DRUGS (2)
  1. ZYPREXA [Suspect]
     Dosage: 5 MG, 2/D
     Dates: start: 20080501
  2. OXYGEN [Concomitant]
     Indication: DYSPNOEA

REACTIONS (1)
  - CARDIAC ARREST [None]
